FAERS Safety Report 24335954 (Version 3)
Quarter: 2024Q4

REPORT INFORMATION
  Report Type: Report from Study
  Country: DE (occurrence: DE)
  Receive Date: 20240919
  Receipt Date: 20241114
  Transmission Date: 20250114
  Serious: Yes (Other)
  Sender: JOHNSON AND JOHNSON
  Company Number: DE-JNJFOC-20240937680

PATIENT
  Age: 44 Year
  Sex: Male

DRUGS (2)
  1. SPRAVATO [Suspect]
     Active Substance: ESKETAMINE
     Indication: Depression
     Dates: start: 20240620, end: 20240620
  2. SPRAVATO [Suspect]
     Active Substance: ESKETAMINE
     Dosage: 27-JUN-2024, 02-JUL-2024, 04-JUL-2024, 09-JUL-2024, 11-JUL-2024, 16-JUL-2024, 18-JUL-2024, 22-AUG-20
     Dates: start: 20240625, end: 20240910

REACTIONS (4)
  - Suicidal ideation [Recovered/Resolved]
  - Feelings of worthlessness [Recovered/Resolved]
  - Sleep deficit [Unknown]
  - Blood pressure increased [Recovered/Resolved]

NARRATIVE: CASE EVENT DATE: 20240828
